FAERS Safety Report 7778199-9 (Version None)
Quarter: 2011Q3

REPORT INFORMATION
  Report Type: 
  Country: None (occurrence: None)
  Receive Date: 20110926
  Receipt Date: 20110921
  Transmission Date: 20111222
  Serious: Yes (Other)
  Sender: FDA-Public Use
  Company Number: JP-MERCK-1109USA00729

PATIENT
  Age: 51 Year
  Sex: Male

DRUGS (5)
  1. JANUVIA [Suspect]
     Route: 048
     Dates: start: 20110101, end: 20110101
  2. GASMOTIN [Concomitant]
     Route: 048
     Dates: start: 20110601, end: 20110801
  3. MUCOSTA [Concomitant]
     Route: 048
     Dates: start: 20110601, end: 20110801
  4. SELBEX [Concomitant]
     Route: 048
     Dates: start: 20110601, end: 20110801
  5. GLIMICRON [Concomitant]
     Route: 048

REACTIONS (1)
  - LIVER DISORDER [None]
